FAERS Safety Report 6942104-5 (Version None)
Quarter: 2010Q3

REPORT INFORMATION
  Report Type: 
  Country: None (occurrence: None)
  Receive Date: 20100823
  Receipt Date: 20100802
  Transmission Date: 20110219
  Serious: Yes (Other)
  Sender: FDA-Public Use
  Company Number: 656869

PATIENT
  Sex: Female

DRUGS (2)
  1. DEXTROSE [Suspect]
     Indication: PRODUCT USED FOR UNKNOWN INDICATION
     Dosage: 50 ML, X1, INTRAVENOUS
     Route: 042
  2. INSULIN [Concomitant]

REACTIONS (2)
  - HYPOGLYCAEMIA [None]
  - PRODUCT MEASURED POTENCY ISSUE [None]
